FAERS Safety Report 19054711 (Version 1)
Quarter: 2021Q1

REPORT INFORMATION
  Report Type: Spontaneous
  Country: US (occurrence: US)
  Receive Date: 20210325
  Receipt Date: 20210325
  Transmission Date: 20210420
  Serious: Yes (Other)
  Sender: FDA-Public Use
  Company Number: US-AUROBINDO-AUR-APL-2021-011262

PATIENT
  Age: 41 Year
  Sex: Male

DRUGS (11)
  1. KETAMINE HYDROCHLORIDE. [Suspect]
     Active Substance: KETAMINE HYDROCHLORIDE
     Indication: PAIN
     Dosage: 35 MILLIGRAM, FOUR TIMES/DAY
     Route: 065
  2. KETAMINE HYDROCHLORIDE. [Suspect]
     Active Substance: KETAMINE HYDROCHLORIDE
     Indication: PAIN
     Dosage: 20 MILLIGRAM, FOUR TIMES/DAY
     Route: 048
  3. KETAMINE HYDROCHLORIDE. [Suspect]
     Active Substance: KETAMINE HYDROCHLORIDE
     Dosage: 40 MILLIGRAM
     Route: 065
  4. KETAMINE HYDROCHLORIDE. [Suspect]
     Active Substance: KETAMINE HYDROCHLORIDE
     Dosage: 350 MILLIGRAM (INSTEAD OF PRESCRIBED DOSE, WHICH WAS 35MG)
     Route: 065
  5. TIZANIDINE. [Concomitant]
     Active Substance: TIZANIDINE
     Dosage: UNK (2MG AT 8 AM AND 4 PM AND 4MG AT BEDTIME)
     Route: 065
  6. HYDROMORPHONE [Concomitant]
     Active Substance: HYDROMORPHONE
     Indication: PRODUCT USED FOR UNKNOWN INDICATION
     Dosage: UNK UNK, DAILY (}50 MG)
     Route: 042
  7. HYDROMORPHONE [Concomitant]
     Active Substance: HYDROMORPHONE
     Dosage: 90 MILLIGRAM
     Route: 042
  8. KETAMINE [Concomitant]
     Active Substance: KETAMINE
     Indication: PRODUCT USED FOR UNKNOWN INDICATION
     Dosage: KETAMINE CHALLENGE OF A ONE?TIME 20 MG IV DOSE, A RECOMMENDED TEST DOSE PER HOSPITAL GUIDELINE (EQUA
     Route: 042
  9. HYDROMORPHONE [Concomitant]
     Active Substance: HYDROMORPHONE
     Indication: PRODUCT USED FOR UNKNOWN INDICATION
     Dosage: 4 MILLIGRAM, EVERY FOUR HOUR (AS NEEDED FOR BREAKTHROUGH PAIN)
     Route: 048
  10. FENTANYL. [Concomitant]
     Active Substance: FENTANYL
     Indication: PRODUCT USED FOR UNKNOWN INDICATION
     Dosage: 75 MICROGRAM/HOUR
     Route: 065
  11. METHOCARBAMOL. [Concomitant]
     Active Substance: METHOCARBAMOL
     Indication: PRODUCT USED FOR UNKNOWN INDICATION
     Dosage: 1500 MILLIGRAM, FOUR TIMES/DAY
     Route: 065

REACTIONS (11)
  - Depressed level of consciousness [Unknown]
  - Agitation [Unknown]
  - Tachycardia [Unknown]
  - Respiratory rate decreased [Unknown]
  - Medication error [Unknown]
  - Hypoxia [Unknown]
  - Diastolic hypertension [Unknown]
  - Sedation [Unknown]
  - Off label use [Unknown]
  - Dysphoria [Unknown]
  - Accidental overdose [Unknown]
